FAERS Safety Report 15206266 (Version 2)
Quarter: 2020Q3

REPORT INFORMATION
  Report Type: Report from Study
  Country: None (occurrence: DE)
  Receive Date: 20180727
  Receipt Date: 20181006
  Transmission Date: 20201104
  Serious: Yes (Death)
  Sender: FDA-Public Use
  Company Number: DE-ABBVIE-08P-062-0441584-00

PATIENT
  Age: 71 Year
  Sex: Female

DRUGS (83)
  1. EUNERPAN [Suspect]
     Active Substance: MELPERONE HYDROCHLORIDE
     Dosage: INTRAGASTRAL
     Route: 048
     Dates: start: 20041030, end: 20041031
  2. SODIUM PERCHLORATE [Suspect]
     Active Substance: SODIUM PERCHLORATE
     Indication: HYPERTHYROIDISM
     Dosage: INTRAGASTRAL
     Route: 048
     Dates: start: 20041006, end: 20041105
  3. POTASSIUM CLORIDE 40 [Suspect]
     Active Substance: POTASSIUM CHLORIDE
     Indication: HYPOKALAEMIA
     Dosage: INTRAGASTRAL
     Route: 048
     Dates: start: 20041101, end: 20041101
  4. GLUCOSE [Suspect]
     Active Substance: DEXTROSE
     Dosage: UNK
     Route: 042
     Dates: start: 20041102, end: 20041102
  5. PROMETHAZINE HYDROCHLORIDE. [Concomitant]
     Active Substance: PROMETHAZINE HYDROCHLORIDE
     Indication: PRODUCT USED FOR UNKNOWN INDICATION
     Dosage: 5 DF, BID
     Dates: start: 20041105, end: 20041108
  6. TAZOBACTAM [Concomitant]
     Active Substance: TAZOBACTAM
     Indication: PRODUCT USED FOR UNKNOWN INDICATION
     Dosage: 4.5 MG, TID
     Dates: start: 20041007, end: 20041015
  7. METOPROLOL. [Suspect]
     Active Substance: METOPROLOL
     Indication: PRODUCT USED FOR UNKNOWN INDICATION
     Dosage: INTRAGASTRAL
     Route: 048
     Dates: start: 20041012, end: 20041031
  8. PANTOZOL [Suspect]
     Active Substance: PANTOPRAZOLE SODIUM
     Indication: PROPHYLAXIS AGAINST GASTROINTESTINAL ULCER
     Dosage: INTRAGASTRAL
     Route: 048
     Dates: start: 20041007, end: 20041031
  9. EUNERPAN [Suspect]
     Active Substance: MELPERONE HYDROCHLORIDE
     Indication: SLEEP DISORDER
     Dosage: INTRAGASTRAL
     Route: 048
     Dates: start: 20041102, end: 20041107
  10. ACETYLSALICYLIC ACID [Suspect]
     Active Substance: ASPIRIN
     Indication: THROMBOSIS PROPHYLAXIS
     Dosage: INTRAGASTRAL
     Route: 048
     Dates: start: 20040927, end: 20041107
  11. PIPAMPERONE HYDROCHLORIDE [Suspect]
     Active Substance: PIPAMPERONE HYDROCHLORIDE
     Indication: CONFUSIONAL STATE
     Dosage: INTRAGASTRAL
     Route: 048
     Dates: start: 20041103, end: 20041104
  12. HYDROCHLOROTHIAZIDE. [Suspect]
     Active Substance: HYDROCHLOROTHIAZIDE
     Indication: ESSENTIAL HYPERTENSION
     Dosage: INTRAGASTRAL
     Route: 048
     Dates: start: 20041012, end: 20041031
  13. GLUCOSE [Suspect]
     Active Substance: DEXTROSE
     Indication: HYPOGLYCAEMIA
     Dosage: UNK
     Route: 042
     Dates: start: 20041108, end: 20041108
  14. POTASSIUM CHLORIDE. [Suspect]
     Active Substance: POTASSIUM CHLORIDE
     Dosage: INTRAGASTRAL
     Route: 048
     Dates: start: 20041015, end: 20041020
  15. FERROUS SULFATE. [Suspect]
     Active Substance: FERROUS SULFATE
     Indication: MINERAL SUPPLEMENTATION
     Dosage: 1 DF, QD
     Route: 048
     Dates: start: 20041103, end: 20041107
  16. PIPERACILLIN AND TAZOBACTAM [Concomitant]
     Active Substance: PIPERACILLIN SODIUM\TAZOBACTAM SODIUM
     Indication: PRODUCT USED FOR UNKNOWN INDICATION
     Dosage: 13.5GRAMTID
     Route: 065
     Dates: start: 20041007, end: 20041015
  17. PREDNISOLONE SODIUM SUCCINATE [Concomitant]
     Active Substance: PREDNISOLONE SODIUM SUCCINATE
     Indication: PRODUCT USED FOR UNKNOWN INDICATION
     Dosage: UNK
     Route: 065
     Dates: start: 20041105, end: 20041110
  18. DIFLUCAN [Concomitant]
     Active Substance: FLUCONAZOLE
     Indication: PRODUCT USED FOR UNKNOWN INDICATION
     Dosage: 1DOSAGE FORMSQD
     Dates: start: 20041106, end: 20041110
  19. CETIRIZINE HYDROCHLORIDE. [Concomitant]
     Active Substance: CETIRIZINE HYDROCHLORIDE
     Indication: PRODUCT USED FOR UNKNOWN INDICATION
     Dosage: INTRAGASTRAL
     Route: 048
     Dates: start: 20041110, end: 20041110
  20. LORAZEPAM. [Suspect]
     Active Substance: LORAZEPAM
     Dosage: INTRAGASTRAL
     Route: 048
     Dates: start: 20041030, end: 20041030
  21. CLOPIDOGREL [Suspect]
     Active Substance: CLOPIDOGREL BISULFATE
     Indication: THROMBOSIS PROPHYLAXIS
     Dosage: INTRAGASTRAL
     Route: 048
     Dates: start: 20041005, end: 20041107
  22. LOPERAMIDE [Suspect]
     Active Substance: LOPERAMIDE
     Indication: DIARRHOEA
     Dosage: INTRAGASTRAL
     Route: 048
     Dates: start: 20041031, end: 20041031
  23. DIGITOXIN [Suspect]
     Active Substance: DIGITOXIN
     Indication: CARDIAC FAILURE
     Dosage: INTRAGASTRAL
     Route: 048
     Dates: start: 20041014, end: 20041027
  24. ELECTROLYTES NOS [Suspect]
     Active Substance: ELECTROLYTES NOS
     Indication: FLUID REPLACEMENT
     Dosage: UNK
     Route: 042
     Dates: start: 20041002, end: 20041111
  25. MELPERONE HYDROCHLORIDE [Suspect]
     Active Substance: MELPERONE HYDROCHLORIDE
     Dosage: 1 ML, QD
     Route: 048
     Dates: start: 20041102, end: 20041107
  26. FENISTIL [Concomitant]
     Active Substance: DIMETHINDENE
     Dosage: 1 DF, QD
     Dates: start: 20041105, end: 20041105
  27. HALOPERIDOL. [Concomitant]
     Active Substance: HALOPERIDOL
     Indication: PRODUCT USED FOR UNKNOWN INDICATION
     Dosage: INTRAGASTRAL
     Route: 048
     Dates: start: 20041104, end: 20041105
  28. AMPHOTERICIN B. [Concomitant]
     Active Substance: AMPHOTERICIN B
     Indication: PRODUCT USED FOR UNKNOWN INDICATION
     Dosage: INTRAGASTRAL
     Route: 048
     Dates: start: 20041106, end: 20041110
  29. LEVOFLOXACIN. [Concomitant]
     Active Substance: LEVOFLOXACIN
     Indication: PRODUCT USED FOR UNKNOWN INDICATION
     Dosage: 500MILLIGRAMQD
     Dates: start: 20041107, end: 20041110
  30. ZYRTEC [Concomitant]
     Active Substance: CETIRIZINE HYDROCHLORIDE
     Indication: PRODUCT USED FOR UNKNOWN INDICATION
     Dosage: 2 DF, QD
     Dates: start: 20041110, end: 20041110
  31. METOPROLOL. [Suspect]
     Active Substance: METOPROLOL
     Dosage: INTRAGASTRAL
     Route: 048
     Dates: start: 20041101, end: 20041107
  32. PANTOZOL [Suspect]
     Active Substance: PANTOPRAZOLE SODIUM
     Indication: GASTROINTESTINAL ULCER
  33. ACETYLSALICYLIC ACID [Suspect]
     Active Substance: ASPIRIN
     Dosage: 100 MG, QD
     Route: 048
     Dates: start: 20040729, end: 20041107
  34. RAMIPRIL. [Suspect]
     Active Substance: RAMIPRIL
     Indication: ESSENTIAL HYPERTENSION
     Dosage: INTRAGASTRAL
     Route: 048
     Dates: start: 20041007, end: 20041031
  35. DIGITOXIN [Suspect]
     Active Substance: DIGITOXIN
     Indication: CARDIAC FAILURE
     Dosage: INTRAGASTRAL
     Route: 048
     Dates: start: 20041103, end: 20041111
  36. FERRO?SANOL DUODENAL [Suspect]
     Active Substance: FERROUS GLYCINE SULFATE
     Indication: MINERAL SUPPLEMENTATION
     Dosage: INTRAGASTRAL
     Route: 048
     Dates: start: 20041103, end: 20041107
  37. POTASSIUM CITRATE. [Suspect]
     Active Substance: POTASSIUM CITRATE
     Dosage: 1 DF, QD
     Route: 048
     Dates: start: 20041023, end: 20041025
  38. METOCLOPRAMIDE. [Suspect]
     Active Substance: METOCLOPRAMIDE
     Indication: NAUSEA
     Dosage: INTRAGASTRAL
     Route: 048
     Dates: start: 20041025, end: 20041028
  39. DERMATOP [Concomitant]
     Active Substance: PREDNICARBATE
     Indication: SKIN DISORDER
     Dosage: 2DOSAGE FORMSQD
     Route: 061
     Dates: start: 20041110, end: 20041110
  40. FUROSEMIDE. [Suspect]
     Active Substance: FUROSEMIDE
     Indication: POLYURIA
     Dosage: 40 MG, QD
     Route: 042
     Dates: start: 20041102, end: 20041111
  41. HUMALOG [Suspect]
     Active Substance: INSULIN LISPRO
     Indication: DIABETES MELLITUS
     Dosage: 3DOSAGE FORMSTID
     Route: 058
     Dates: start: 20040729, end: 20041110
  42. MELPERONE HYDROCHLORIDE [Suspect]
     Active Substance: MELPERONE HYDROCHLORIDE
     Indication: SLEEP DISORDER
     Dosage: 1 ML, QD
     Route: 065
     Dates: start: 20041030, end: 20041031
  43. POTASSIUM CHLORIDE. [Suspect]
     Active Substance: POTASSIUM CHLORIDE
     Dosage: 40 MILLIMOLQD
     Route: 042
     Dates: start: 20041102, end: 20041102
  44. METOCLOPRAMIDE. [Suspect]
     Active Substance: METOCLOPRAMIDE
     Indication: VOMITING
     Dosage: INTRAGASTRAL
     Route: 048
     Dates: start: 20041023, end: 20041023
  45. SODIUM CHLORIDE. [Suspect]
     Active Substance: SODIUM CHLORIDE
     Indication: FLUID REPLACEMENT
     Dosage: 500MILLILITERQD
     Route: 042
     Dates: start: 20041024, end: 20041027
  46. POLYSPECTRAN [Concomitant]
     Indication: OCULAR HYPERAEMIA
     Dosage: RETROBULBAR
     Dates: start: 20041108
  47. LORAZEPAM. [Suspect]
     Active Substance: LORAZEPAM
     Indication: SLEEP DISORDER
     Dosage: INTRAGASTRAL
     Route: 048
     Dates: start: 20041014, end: 20041014
  48. DIGITOXIN [Suspect]
     Active Substance: DIGITOXIN
     Dosage: 5 DF, QD
     Route: 048
     Dates: start: 20041106, end: 20041108
  49. PIPAMPERONE HYDROCHLORIDE [Suspect]
     Active Substance: PIPAMPERONE HYDROCHLORIDE
     Indication: DISORIENTATION
  50. LANTUS [Suspect]
     Active Substance: INSULIN GLARGINE
     Indication: DIABETES MELLITUS
     Dosage: UNK
     Route: 058
     Dates: start: 20040729, end: 20041110
  51. BROTIZOLAM [Suspect]
     Active Substance: BROTIZOLAM
     Indication: SLEEP DISORDER
     Dosage: INTRAGASTRAL
     Route: 048
     Dates: start: 20041103, end: 20041103
  52. BROTIZOLAM [Suspect]
     Active Substance: BROTIZOLAM
     Dosage: INTRAGASTRAL
     Route: 048
     Dates: start: 20041110, end: 20041110
  53. POTASSIUM CITRATE. [Suspect]
     Active Substance: POTASSIUM CITRATE
     Dosage: 1 DF, QD
     Route: 048
     Dates: start: 20001102, end: 20041104
  54. SORTIS [Suspect]
     Active Substance: ATORVASTATIN
     Indication: HYPERCHOLESTEROLAEMIA
     Dosage: INTRAGASTRAL
     Route: 048
     Dates: start: 20040729, end: 20041102
  55. METAMIZOLE SODIUM [Suspect]
     Active Substance: METAMIZOLE SODIUM
     Indication: HYPERTHYROIDISM
     Dosage: INTRAGASTRAL
     Route: 048
     Dates: start: 20041017, end: 20041017
  56. POTASSIUM CHLORIDE. [Suspect]
     Active Substance: POTASSIUM CHLORIDE
     Dosage: 40MILLIMOLQD
     Route: 042
     Dates: start: 20041027, end: 20041027
  57. METOCLOPRAMIDE. [Suspect]
     Active Substance: METOCLOPRAMIDE
     Dosage: INTRAGASTRAL
     Route: 048
     Dates: start: 20041024, end: 20041025
  58. FENISTIL [Concomitant]
     Active Substance: DIMETHINDENE
     Indication: PRODUCT USED FOR UNKNOWN INDICATION
     Dosage: 1 DF, TID
     Dates: start: 20041104, end: 20041107
  59. PERFALGAN [Concomitant]
     Active Substance: ACETAMINOPHEN
     Dosage: UNK
     Route: 065
     Dates: start: 20041021, end: 20041021
  60. TAVANIC [Concomitant]
     Active Substance: LEVOFLOXACIN
     Indication: PRODUCT USED FOR UNKNOWN INDICATION
     Dosage: 500 MG, QD
     Route: 065
     Dates: start: 20041107, end: 20041110
  61. KLACID [Suspect]
     Active Substance: CLARITHROMYCIN
     Indication: PNEUMONIA
     Dosage: INTRAGASTRAL
     Route: 048
     Dates: start: 20041018, end: 20041024
  62. TORASEMIDE [Suspect]
     Active Substance: TORSEMIDE
     Dosage: INTRAGASTRAL
     Route: 048
     Dates: start: 20041102, end: 20041105
  63. RAMIPRIL. [Suspect]
     Active Substance: RAMIPRIL
     Dosage: 5 DF, QD
     Route: 048
     Dates: start: 20041101, end: 20041102
  64. JONOSTERIL (CALCIUM ACETATE\MAGNESIUM ACETATE\POTASSIUM ACETATE\SODIUM ACETATE\SODIUM CHLORIDE) [Suspect]
     Active Substance: CALCIUM ACETATE\MAGNESIUM ACETATE\POTASSIUM ACETATE\SODIUM ACETATE\SODIUM CHLORI
     Indication: FLUID REPLACEMENT
     Dosage: UNK
     Route: 065
     Dates: start: 20041002, end: 20041111
  65. POTASSIUM CLORIDE 40 [Suspect]
     Active Substance: POTASSIUM CHLORIDE
     Dosage: INTRAGASTRAL
     Route: 048
     Dates: start: 20041025, end: 20041027
  66. BELOC?ZOK COMP [Suspect]
     Active Substance: HYDROCHLOROTHIAZIDE\METOPROLOL SUCCINATE
     Indication: ACUTE MYOCARDIAL INFARCTION
     Dosage: UNK
     Route: 048
     Dates: start: 20041012, end: 20041031
  67. METAMIZOLE SODIUM [Suspect]
     Active Substance: METAMIZOLE SODIUM
     Dosage: 50 MG, UNK
     Route: 048
     Dates: start: 20041006, end: 20041105
  68. POTASSIUM CHLORIDE. [Suspect]
     Active Substance: POTASSIUM CHLORIDE
     Indication: HYPOKALAEMIA
     Dosage: INTRAGASTRAL
     Route: 048
     Dates: start: 20001102, end: 20041104
  69. POTASSIUM CHLORIDE. [Suspect]
     Active Substance: POTASSIUM CHLORIDE
     Dosage: INTRAGASTRAL
     Route: 048
     Dates: start: 20041023, end: 20041025
  70. CLARITHROMYCIN. [Suspect]
     Active Substance: CLARITHROMYCIN
     Indication: PNEUMONIA
     Dosage: 250 MG, UNK
     Route: 048
     Dates: start: 20041018, end: 20041024
  71. FLUNITRAZEPAM [Concomitant]
     Active Substance: FLUNITRAZEPAM
     Indication: PRODUCT USED FOR UNKNOWN INDICATION
     Dosage: 1MILLIGRAMQD
     Route: 048
     Dates: start: 20041018, end: 20041018
  72. MORPHINE [Concomitant]
     Active Substance: MORPHINE
     Indication: PRODUCT USED FOR UNKNOWN INDICATION
     Dosage: 1 DF, BID
     Route: 058
     Dates: start: 20041106, end: 20041109
  73. TORASEMIDE [Suspect]
     Active Substance: TORSEMIDE
     Indication: RENAL FAILURE
     Dosage: INTRAGASTRAL
     Route: 048
     Dates: start: 20041012, end: 20041031
  74. ALLOPURINOL. [Suspect]
     Active Substance: ALLOPURINOL
     Indication: HYPERURICAEMIA
     Dosage: INTRAGASTRAL
     Route: 048
     Dates: start: 20041024, end: 20041102
  75. CLEXANE [Suspect]
     Active Substance: ENOXAPARIN SODIUM
     Indication: THROMBOSIS PROPHYLAXIS
     Dosage: 40 ML, BID
     Route: 058
     Dates: start: 20041011, end: 20041128
  76. FUROSEMIDE. [Suspect]
     Active Substance: FUROSEMIDE
     Dosage: INTRAGASTRAL
     Route: 048
     Dates: start: 20041101, end: 20041101
  77. BROTIZOLAM [Suspect]
     Active Substance: BROTIZOLAM
     Dosage: INTRAGASTRAL
     Route: 048
     Dates: start: 20041015, end: 20041024
  78. POTASSIUM CITRATE. [Suspect]
     Active Substance: POTASSIUM CITRATE
     Indication: HYPOKALAEMIA
     Dosage: 1 DF, QD
     Route: 048
     Dates: start: 20041015, end: 20041020
  79. METHIMAZOLE. [Suspect]
     Active Substance: METHIMAZOLE
     Indication: HYPERTHYROIDISM
     Dosage: INTRAGASTRAL
     Route: 048
     Dates: start: 20041006, end: 20041105
  80. CARBAMAZEPINE. [Suspect]
     Active Substance: CARBAMAZEPINE
     Indication: AGITATION
     Dosage: INTRAGASTRAL
     Route: 048
     Dates: start: 20041101, end: 20041102
  81. PERFALGAN [Concomitant]
     Active Substance: ACETAMINOPHEN
     Indication: PRODUCT USED FOR UNKNOWN INDICATION
     Dosage: UNK
     Route: 065
     Dates: start: 20041014, end: 20041014
  82. UNACID (AMPICILLIN SODIUM\SULBACTAM SODIUM) [Concomitant]
     Active Substance: AMPICILLIN SODIUM\SULBACTAM SODIUM
     Indication: PRODUCT USED FOR UNKNOWN INDICATION
     Dosage: 3GRAMQD
     Dates: start: 20041106, end: 20041106
  83. NOVALGIN (METAMIZOLE SODIUM) [Concomitant]
     Active Substance: METAMIZOLE SODIUM
     Indication: PRODUCT USED FOR UNKNOWN INDICATION
     Dosage: 20 GTT, QD
     Dates: start: 20041017, end: 20041017

REACTIONS (10)
  - Lip erosion [Fatal]
  - Stevens-Johnson syndrome [Fatal]
  - Nikolsky^s sign [Fatal]
  - Conjunctivitis [Fatal]
  - Ocular hyperaemia [Fatal]
  - Pruritus [Fatal]
  - Swollen tongue [Fatal]
  - Oral disorder [Fatal]
  - Purpura [Fatal]
  - Blister [Fatal]

NARRATIVE: CASE EVENT DATE: 20041104
